FAERS Safety Report 16437039 (Version 1)
Quarter: 2019Q2

REPORT INFORMATION
  Report Type: Spontaneous
  Country: CA (occurrence: CA)
  Receive Date: 20190614
  Receipt Date: 20190614
  Transmission Date: 20190711
  Serious: Yes (Other)
  Sender: FDA-Public Use
  Company Number: CA-BAXTER-2019BAX010103

PATIENT
  Age: 67 Year

DRUGS (3)
  1. MORPHINE [Suspect]
     Active Substance: MORPHINE
     Indication: HIP ARTHROPLASTY
     Route: 037
     Dates: start: 20190509
  2. BUPIVACAINE 5.0 MG/ML SOLUTION FOR INJECTION [Suspect]
     Active Substance: BUPIVACAINE HYDROCHLORIDE
     Indication: HIP ARTHROPLASTY
     Route: 037
     Dates: start: 20190509
  3. BUPIVACAINE 5.0 MG/ML SOLUTION FOR INJECTION [Suspect]
     Active Substance: BUPIVACAINE HYDROCHLORIDE
     Route: 037
     Dates: start: 20190509

REACTIONS (2)
  - Therapeutic product effect decreased [Recovered/Resolved]
  - Hypercholesterolaemia [Unknown]

NARRATIVE: CASE EVENT DATE: 20190509
